FAERS Safety Report 13705068 (Version 1)
Quarter: 2017Q2

REPORT INFORMATION
  Report Type: Spontaneous
  Country: US (occurrence: US)
  Receive Date: 20170629
  Receipt Date: 20170629
  Transmission Date: 20170830
  Serious: Yes (Life-Threatening, Hospitalization, Disabling, Other)
  Sender: FDA-Public Use
  Company Number: None

PATIENT
  Age: 52 Year
  Sex: Female
  Weight: 48.6 kg

DRUGS (18)
  1. SELENIUM [Concomitant]
     Active Substance: SELENIUM
  2. ZINC. [Concomitant]
     Active Substance: ZINC
  3. FIOROCET [Concomitant]
  4. TIZADINE [Concomitant]
     Active Substance: TIZANIDINE HYDROCHLORIDE
  5. VANCOMYCINE [Concomitant]
     Active Substance: VANCOMYCIN
  6. GARLIC. [Concomitant]
     Active Substance: GARLIC
  7. SPIRONOLACTONE. [Concomitant]
     Active Substance: SPIRONOLACTONE
  8. TRAMADOL. [Concomitant]
     Active Substance: TRAMADOL
  9. GRAPEFRUIT SEED EXTRACT [Concomitant]
     Active Substance: GRAPEFRUIT SEED EXTRACT
  10. DOXYCYCLINE. [Suspect]
     Active Substance: DOXYCYCLINE
     Indication: INFECTION
     Dosage: ?          OTHER STRENGTH:MG;QUANTITY:20 CAPSULE(S);?
     Route: 048
     Dates: start: 20170122, end: 20170131
  11. DONNATAL [Concomitant]
     Active Substance: ATROPINE SULFATE\HYOSCYAMINE SULFATE\PHENOBARBITAL\SCOPOLAMINE HYDROBROMIDE
  12. ZOFRAN [Concomitant]
     Active Substance: ONDANSETRON HYDROCHLORIDE
  13. CAMBIA [Concomitant]
     Active Substance: DICLOFENAC POTASSIUM
  14. PROPANANOL [Concomitant]
  15. VITAMIN C [Concomitant]
     Active Substance: ASCORBIC ACID
  16. KLONOPIN [Concomitant]
     Active Substance: CLONAZEPAM
  17. BIOTIN [Concomitant]
     Active Substance: BIOTIN
  18. CHROMINUM PICOLINATE [Concomitant]

REACTIONS (13)
  - Mucous stools [None]
  - Headache [None]
  - Pseudomembranous colitis [None]
  - Quality of life decreased [None]
  - Pyrexia [None]
  - Pelvic pain [None]
  - Nausea [None]
  - Clostridium difficile infection [None]
  - Diarrhoea haemorrhagic [None]
  - Malaise [None]
  - Abdominal pain [None]
  - Weight decreased [None]
  - Hypophagia [None]

NARRATIVE: CASE EVENT DATE: 20170131
